FAERS Safety Report 12115368 (Version 1)
Quarter: 2016Q1

REPORT INFORMATION
  Report Type: Spontaneous
  Country: US (occurrence: US)
  Receive Date: 20160225
  Receipt Date: 20160225
  Transmission Date: 20160526
  Serious: No
  Sender: FDA-Public Use
  Company Number: US-FRI-1000080495

PATIENT
  Sex: Female

DRUGS (5)
  1. HOMEOPATHIS ANTIHISTAMINE [Concomitant]
  2. LORATADINE. [Concomitant]
     Active Substance: LORATADINE
     Indication: SINUS HEADACHE
     Dosage: 10 MG
     Route: 048
     Dates: start: 20151105
  3. AMLODIPINE [Concomitant]
     Active Substance: AMLODIPINE BESYLATE
     Indication: HYPERTENSION
     Dosage: 2.5 MG
     Route: 048
  4. VIIBRYD [Suspect]
     Active Substance: VILAZODONE HYDROCHLORIDE
     Indication: DEPRESSION
     Dosage: 20 MG
     Route: 048
     Dates: start: 201510
  5. HOMEOPATHIC ANTIDIARRHEAL [Concomitant]

REACTIONS (3)
  - Sinus headache [Not Recovered/Not Resolved]
  - Diarrhoea [Recovered/Resolved]
  - Intentional product misuse [Recovered/Resolved]
